FAERS Safety Report 5488055-7 (Version None)
Quarter: 2007Q4

REPORT INFORMATION
  Report Type: 
  Country: None (occurrence: None)
  Receive Date: 20071017
  Receipt Date: 20071012
  Transmission Date: 20080405
  Serious: Yes (Hospitalization)
  Sender: FDA-Public Use
  Company Number: CA-ASTRAZENECA-2006UW13178

PATIENT
  Age: 14 Year
  Sex: Male

DRUGS (4)
  1. SYMBICORT [Suspect]
     Indication: ASTHMA
     Dosage: 2 PUFFS
     Route: 055
  2. VENTOLIN [Concomitant]
     Indication: ASTHMA
     Route: 055
  3. QVAR 40 [Concomitant]
     Indication: ASTHMA
     Route: 055
  4. VITAMINS [Concomitant]
     Indication: MEDICAL DIET
     Route: 048

REACTIONS (5)
  - HYPERSENSITIVITY [None]
  - LACTOSE INTOLERANCE [None]
  - MIGRAINE [None]
  - MILK ALLERGY [None]
  - VOMITING [None]
